FAERS Safety Report 4819395-X (Version None)
Quarter: 2005Q4

REPORT INFORMATION
  Report Type: 
  Country: None (occurrence: None)
  Receive Date: 20051031
  Receipt Date: 20050722
  Transmission Date: 20060501
  Serious: No
  Sender: FDA-Public Use
  Company Number: 2005PV000539

PATIENT
  Age: 49 Year
  Sex: Female
  Weight: 118.8424 kg

DRUGS (9)
  1. SYMLIN [Suspect]
     Indication: DIABETES MELLITUS NON-INSULIN-DEPENDENT
     Dosage: 45 MCG; BID; SC
     Route: 058
     Dates: start: 20050707
  2. LEVOXYL [Concomitant]
  3. LANTUS [Concomitant]
  4. HUMULIN 70/30 [Concomitant]
  5. NIASPAN [Concomitant]
  6. LISINOPRIL [Concomitant]
  7. LEXAPRO [Concomitant]
  8. SEROQUEL [Concomitant]
  9. VALIUM [Concomitant]

REACTIONS (2)
  - BLOOD GLUCOSE INCREASED [None]
  - PERSONALITY CHANGE [None]
